FAERS Safety Report 7270864-5 (Version None)
Quarter: 2011Q1

REPORT INFORMATION
  Report Type: 
  Country: None (occurrence: None)
  Receive Date: 20110202
  Receipt Date: 20110125
  Transmission Date: 20110831
  Serious: Yes (Death)
  Sender: FDA-Public Use
  Company Number: US-PURDUE-USA-2011-0063071

PATIENT
  Age: 45 Year
  Sex: Male

DRUGS (3)
  1. BENZODIAZEPINE DERIVATIVES [Suspect]
     Indication: CRUSH INJURY
  2. OXYCODONE HCL [Suspect]
     Indication: CRUSH INJURY
  3. OXYCONTIN [Suspect]
     Indication: CRUSH INJURY

REACTIONS (1)
  - DEATH [None]
